FAERS Safety Report 5841324-0 (Version None)
Quarter: 2008Q3

REPORT INFORMATION
  Report Type: 
  Country: None (occurrence: None)
  Receive Date: 20080731
  Receipt Date: 20080512
  Transmission Date: 20090109
  Serious: No
  Sender: FDA-Public Use
  Company Number: US200805002861

PATIENT
  Age: 56 Year
  Sex: Male

DRUGS (4)
  1. BYETTA [Suspect]
     Indication: TYPE 2 DIABETES MELLITUS
     Dosage: 5 UG, 2/D, SUBCUTANEOUS; 10 UG, 2/D, SUBCUTANEOUS
     Route: 058
     Dates: start: 20070401, end: 20070501
  2. BYETTA [Suspect]
     Indication: TYPE 2 DIABETES MELLITUS
     Dosage: 5 UG, 2/D, SUBCUTANEOUS; 10 UG, 2/D, SUBCUTANEOUS
     Route: 058
     Dates: start: 20070501
  3. GLIMEPIRIDE [Concomitant]
  4. EXENATIDE [Concomitant]

REACTIONS (5)
  - BACK PAIN [None]
  - CONCUSSION [None]
  - MUSCULOSKELETAL PAIN [None]
  - ROAD TRAFFIC ACCIDENT [None]
  - SKIN LACERATION [None]
